FAERS Safety Report 7626071-7 (Version None)
Quarter: 2011Q3

REPORT INFORMATION
  Report Type: 
  Country: None (occurrence: None)
  Receive Date: 20110713
  Receipt Date: 20110701
  Transmission Date: 20111222
  Serious: Yes (Other)
  Sender: FDA-Public Use
  Company Number: 2011P1007358

PATIENT
  Age: 44 Year
  Sex: Female
  Weight: 129.7287 kg

DRUGS (13)
  1. LISINOPRIL [Concomitant]
  2. SIMVASTATIN [Concomitant]
  3. SINGULAIR [Concomitant]
  4. INSULIN [Concomitant]
  5. ADVAIR DISKUS 100/50 [Concomitant]
  6. CLONIDINE [Concomitant]
  7. METOPROLOL TARTRATE [Concomitant]
  8. GLYBURIDE [Suspect]
     Indication: DIABETES MELLITUS
     Dosage: 2.5 MG; BID; PO
     Route: 048
     Dates: start: 20090101, end: 20110620
  9. THEOPHYLLINE [Concomitant]
  10. DIOVAN [Concomitant]
  11. GABAPENTIN [Concomitant]
  12. METFORMIN HCL [Concomitant]
  13. PREDNISONE [Concomitant]

REACTIONS (3)
  - URTICARIA [None]
  - GASTRIC BYPASS [None]
  - RASH PRURITIC [None]
